FAERS Safety Report 8500492-2 (Version None)
Quarter: 2012Q3

REPORT INFORMATION
  Report Type: 
  Country: None (occurrence: None)
  Receive Date: 20120705
  Receipt Date: 20120705
  Transmission Date: 20120928
  Serious: Yes (Hospitalization)
  Sender: FDA-Public Use
  Company Number: None

PATIENT
  Age: 46 Year
  Sex: Male
  Weight: 75 kg

DRUGS (2)
  1. METHOTREXATE [Suspect]
     Indication: PSORIASIS
     Dosage: 15 MG QWEEK PO
     Route: 048
     Dates: start: 20091101
  2. ADALIMUMAB [Suspect]
     Indication: PSORIASIS
     Dosage: 40 MG OTHER SQ
     Route: 058
     Dates: start: 20080301

REACTIONS (12)
  - OEDEMA [None]
  - WHITE BLOOD CELL COUNT INCREASED [None]
  - ASPARTATE AMINOTRANSFERASE INCREASED [None]
  - TACHYPNOEA [None]
  - RASH [None]
  - ERYTHEMA [None]
  - CELLULITIS [None]
  - ALANINE AMINOTRANSFERASE INCREASED [None]
  - BLOOD ALKALINE PHOSPHATASE INCREASED [None]
  - SWELLING FACE [None]
  - PAIN [None]
  - EAR DISORDER [None]
